FAERS Safety Report 25129547 (Version 1)
Quarter: 2025Q1

REPORT INFORMATION
  Report Type: Spontaneous
  Country: CN (occurrence: CN)
  Receive Date: 20250327
  Receipt Date: 20250327
  Transmission Date: 20250409
  Serious: Yes (Other)
  Sender: PFIZER
  Company Number: CN-PFIZER INC-PV202500035721

PATIENT
  Age: 82 Year
  Sex: Male
  Weight: 62.5 kg

DRUGS (5)
  1. VORICONAZOLE [Suspect]
     Active Substance: VORICONAZOLE
     Indication: Infection
     Dosage: 0.2 G, 1X/DAY
     Route: 041
     Dates: start: 20250222, end: 20250322
  2. VORICONAZOLE [Suspect]
     Active Substance: VORICONAZOLE
     Dosage: 0.37 G, 1X/DAY
     Route: 041
     Dates: start: 20250223, end: 20250223
  3. VORICONAZOLE [Suspect]
     Active Substance: VORICONAZOLE
     Dosage: 0.25 G, 2X/DAY
     Route: 041
     Dates: start: 20250224, end: 20250224
  4. SODIUM CHLORIDE [Concomitant]
     Active Substance: SODIUM CHLORIDE
     Indication: Vehicle solution use
     Dosage: 100 ML, 1X/DAY
     Route: 041
     Dates: start: 20250222, end: 20250223
  5. SODIUM CHLORIDE [Concomitant]
     Active Substance: SODIUM CHLORIDE
     Dosage: 100 ML, 2X/DAY
     Route: 041
     Dates: start: 20250224, end: 20250224

REACTIONS (3)
  - Hallucination [Recovering/Resolving]
  - Dysphoria [Recovering/Resolving]
  - Dizziness [Recovering/Resolving]

NARRATIVE: CASE EVENT DATE: 20250225
